FAERS Safety Report 5526468-5 (Version None)
Quarter: 2007Q4

REPORT INFORMATION
  Report Type: 
  Country: None (occurrence: None)
  Receive Date: 20071127
  Receipt Date: 20071112
  Transmission Date: 20080405
  Serious: Yes (Hospitalization, Other)
  Sender: FDA-Public Use
  Company Number: IT-AMGEN-UK243423

PATIENT
  Sex: Male

DRUGS (3)
  1. NESPO [Suspect]
     Indication: RENAL FAILURE CHRONIC
     Route: 058
     Dates: start: 20030101, end: 20070820
  2. FRUSEMIDE [Concomitant]
     Route: 048
  3. POTASSIUM CANRENOATE [Concomitant]
     Route: 048

REACTIONS (1)
  - APLASIA PURE RED CELL [None]
